FAERS Safety Report 18570874 (Version 1)
Quarter: 2020Q4

REPORT INFORMATION
  Report Type: Spontaneous
  Country: US (occurrence: US)
  Receive Date: 20201202
  Receipt Date: 20201202
  Transmission Date: 20210114
  Serious: Yes (Hospitalization)
  Sender: FDA-Public Use
  Company Number: US-ASTRAZENECA-2020SF54358

PATIENT
  Age: 20353 Day
  Sex: Female
  Weight: 99.8 kg

DRUGS (8)
  1. HORMONE TESTOSTERONE [Concomitant]
  2. DIAZEPAM. [Concomitant]
     Active Substance: DIAZEPAM
     Dosage: 5.0MG AS REQUIRED
  3. PULMICORT FLEXHALER [Suspect]
     Active Substance: BUDESONIDE
     Indication: COVID-19
     Dosage: TWO PUFFS180UG/INHAL TWO TIMES A DAY
     Route: 055
     Dates: start: 20201031
  4. ALBUTEROL. [Concomitant]
     Active Substance: ALBUTEROL
  5. NAPROXEN. [Concomitant]
     Active Substance: NAPROXEN
  6. AMBIEN CR [Concomitant]
     Active Substance: ZOLPIDEM TARTRATE
     Dosage: 12, AT NIGHT
  7. BACLOFEN. [Concomitant]
     Active Substance: BACLOFEN
     Dosage: 10.0MG AS REQUIRED
  8. SUMATRIPTAN. [Concomitant]
     Active Substance: SUMATRIPTAN
     Indication: MIGRAINE

REACTIONS (6)
  - Dyspnoea [Unknown]
  - Drug ineffective [Unknown]
  - Off label use [Unknown]
  - Intentional product misuse [Unknown]
  - Device issue [Unknown]
  - COVID-19 pneumonia [Unknown]

NARRATIVE: CASE EVENT DATE: 20201031
